FAERS Safety Report 5996424-1 (Version None)
Quarter: 2008Q4

REPORT INFORMATION
  Report Type: 
  Country: None (occurrence: None)
  Receive Date: 20081212
  Receipt Date: 20081017
  Transmission Date: 20090506
  Serious: No
  Sender: FDA-Public Use
  Company Number: US-ABBOTT-08P-163-0482432-00

PATIENT
  Sex: Male
  Weight: 104.42 kg

DRUGS (4)
  1. HUMIRA [Suspect]
     Indication: CROHN'S DISEASE
     Route: 058
     Dates: start: 20081016
  2. HUMIRA [Suspect]
     Route: 058
     Dates: start: 20070801, end: 20080801
  3. PREDNISONE TAB [Concomitant]
     Indication: CROHN'S DISEASE
     Route: 048
  4. VICODIN [Concomitant]
     Indication: PAIN

REACTIONS (2)
  - ABDOMINAL PAIN UPPER [None]
  - CROHN'S DISEASE [None]
